FAERS Safety Report 6187042-3 (Version None)
Quarter: 2009Q2

REPORT INFORMATION
  Report Type: 
  Country: None (occurrence: None)
  Receive Date: 20090508
  Receipt Date: 20090430
  Transmission Date: 20091009
  Serious: Yes (Hospitalization, Other)
  Sender: FDA-Public Use
  Company Number: 2008-04811

PATIENT
  Age: 65 Year
  Sex: Male
  Weight: 104.2 kg

DRUGS (7)
  1. VELCADE [Suspect]
     Indication: NON-SMALL CELL LUNG CANCER
     Dosage: 1 MG/M2, UNK, UNK
     Dates: start: 20081209, end: 20081212
  2. TAXOTERE [Suspect]
     Indication: NON-SMALL CELL LUNG CANCER
     Dosage: 144 MG, UNK, UNK
     Dates: start: 20081209, end: 20081212
  3. CARBOPLATIN [Concomitant]
     Indication: NON-SMALL CELL LUNG CANCER
     Dosage: 1401 MG
     Dates: start: 20081209, end: 20081209
  4. COUMADIN [Concomitant]
  5. CARDIZEM CD [Concomitant]
  6. HYDROCHLOROTHIAZIDE [Concomitant]
  7. LISINOPRIL [Concomitant]

REACTIONS (30)
  - ABDOMINAL ADHESIONS [None]
  - ABDOMINAL DISTENSION [None]
  - ANAEMIA [None]
  - ATRIAL FIBRILLATION [None]
  - BRONCHIAL SECRETION RETENTION [None]
  - COLITIS [None]
  - DEHYDRATION [None]
  - HAEMATOCRIT DECREASED [None]
  - HYPOALBUMINAEMIA [None]
  - HYPONATRAEMIA [None]
  - HYPOPROTEINAEMIA [None]
  - INTERNATIONAL NORMALISED RATIO INCREASED [None]
  - INTESTINAL PERFORATION [None]
  - LARGE INTESTINE PERFORATION [None]
  - LEFT VENTRICULAR HYPERTROPHY [None]
  - MUCOSAL INFLAMMATION [None]
  - NEUTROPENIA [None]
  - OEDEMA PERIPHERAL [None]
  - OPEN WOUND [None]
  - ORTHOSTATIC HYPOTENSION [None]
  - PLEURAL EFFUSION [None]
  - PROCEDURAL COMPLICATION [None]
  - PROTHROMBIN TIME PROLONGED [None]
  - RENAL FAILURE [None]
  - RENAL FAILURE ACUTE [None]
  - RESPIRATORY FAILURE [None]
  - SCROTAL SWELLING [None]
  - TACHYPNOEA [None]
  - THROMBOCYTOPENIC PURPURA [None]
  - WOUND DEHISCENCE [None]
